FAERS Safety Report 8066282-2 (Version None)
Quarter: 2012Q1

REPORT INFORMATION
  Report Type: 
  Country: None (occurrence: None)
  Receive Date: 20120124
  Receipt Date: 20120112
  Transmission Date: 20120608
  Serious: Yes (Hospitalization, Other)
  Sender: FDA-Public Use
  Company Number: US-JNJFOC-20111005704

PATIENT
  Sex: Male
  Weight: 99.79 kg

DRUGS (8)
  1. MIRTAZAPINE [Concomitant]
     Route: 065
  2. XANAX XR [Concomitant]
     Route: 065
  3. ATIVAN [Concomitant]
     Indication: ANXIETY
     Route: 065
  4. COGENTIN [Concomitant]
     Indication: CONVULSION
     Route: 065
  5. INVEGA SUSTENNA [Suspect]
     Indication: PRODUCT USED FOR UNKNOWN INDICATION
     Route: 030
     Dates: start: 20101001
  6. LAMICTAL [Concomitant]
     Indication: CONVULSION
     Route: 065
  7. INVEGA SUSTENNA [Suspect]
     Route: 030
     Dates: start: 20110401, end: 20111001
  8. RISPERIDONE [Concomitant]
     Route: 065

REACTIONS (1)
  - EPILEPSY [None]
